FAERS Safety Report 4510579-7 (Version None)
Quarter: 2004Q4

REPORT INFORMATION
  Report Type: 
  Country: None (occurrence: None)
  Receive Date: 20041119
  Receipt Date: 20041103
  Transmission Date: 20050328
  Serious: Yes (Other)
  Sender: FDA-Public Use
  Company Number: 2004-CN-00405CN

PATIENT
  Age: 34 Year
  Sex: Male

DRUGS (1)
  1. FLOMAX [Suspect]
     Dosage: 0.8 MG(0.4 MG), PO
     Route: 048

REACTIONS (5)
  - ATROPHY [None]
  - ERECTILE DYSFUNCTION [None]
  - GENITAL DISORDER MALE [None]
  - LOSS OF LIBIDO [None]
  - RETROGRADE EJACULATION [None]
